FAERS Safety Report 9315860 (Version 2)
Quarter: 2013Q2

REPORT INFORMATION
  Report Type: Spontaneous
  Country: US (occurrence: US)
  Receive Date: 20130530
  Receipt Date: 20130625
  Transmission Date: 20140414
  Serious: No
  Sender: FDA-Public Use
  Company Number: US-009507513-1305USA005416

PATIENT
  Age: 27 Year
  Sex: Female
  Weight: 92.97 kg

DRUGS (1)
  1. IMPLANON [Suspect]
     Indication: CONTRACEPTION
     Dosage: 1 DF, UNK
     Route: 059
     Dates: start: 20110207, end: 20130107

REACTIONS (3)
  - Amenorrhoea [Not Recovered/Not Resolved]
  - Amenorrhoea [Unknown]
  - Incorrect drug administration duration [Unknown]
